FAERS Safety Report 24570367 (Version 1)
Quarter: 2024Q4

REPORT INFORMATION
  Report Type: Spontaneous
  Country: CO (occurrence: CO)
  Receive Date: 20241031
  Receipt Date: 20241031
  Transmission Date: 20250115
  Serious: Yes (Hospitalization)
  Sender: EISAI
  Company Number: CO-Eisai-EC-2024-177374

PATIENT
  Age: 65 Year
  Sex: Female

DRUGS (6)
  1. LENVATINIB [Suspect]
     Active Substance: LENVATINIB
     Indication: Papillary thyroid cancer
     Route: 048
     Dates: start: 202203, end: 2022
  2. LENVATINIB [Suspect]
     Active Substance: LENVATINIB
     Route: 048
     Dates: start: 202205, end: 2022
  3. LENVATINIB [Suspect]
     Active Substance: LENVATINIB
     Route: 048
     Dates: start: 202208
  4. SORAFENIB [Concomitant]
     Active Substance: SORAFENIB
     Indication: Papillary thyroid cancer
     Dates: start: 201808
  5. SORAFENIB [Concomitant]
     Active Substance: SORAFENIB
     Dosage: 600-800 MG DAILY
  6. SORAFENIB [Concomitant]
     Active Substance: SORAFENIB
     Dates: start: 201703

REACTIONS (1)
  - Posterior reversible encephalopathy syndrome [Recovered/Resolved]

NARRATIVE: CASE EVENT DATE: 20220401
